FAERS Safety Report 7408558-5 (Version None)
Quarter: 2011Q2

REPORT INFORMATION
  Report Type: 
  Country: None (occurrence: None)
  Receive Date: 20110401
  Receipt Date: 20110322
  Transmission Date: 20111010
  Serious: Yes (Other)
  Sender: FDA-Public Use
  Company Number: TPA2011A01278

PATIENT
  Sex: Female

DRUGS (1)
  1. ULORIC [Suspect]
     Indication: GOUT

REACTIONS (1)
  - STEVENS-JOHNSON SYNDROME [None]
